FAERS Safety Report 6561734-6 (Version None)
Quarter: 2010Q1

REPORT INFORMATION
  Report Type: 
  Country: None (occurrence: None)
  Receive Date: 20100130
  Receipt Date: 20091019
  Transmission Date: 20100710
  Serious: No
  Sender: FDA-Public Use
  Company Number: US-ABBOTT-09P-163-0604886-00

PATIENT
  Sex: Male
  Weight: 87.168 kg

DRUGS (6)
  1. HUMIRA [Suspect]
     Indication: CROHN'S DISEASE
     Route: 058
     Dates: start: 20090904
  2. PREDNISONE [Concomitant]
     Indication: CROHN'S DISEASE
     Route: 048
     Dates: start: 20091023
  3. PREDNISONE [Concomitant]
     Dosage: TAPER
     Route: 048
  4. MERCAPTOPURINE [Concomitant]
     Indication: CROHN'S DISEASE
     Dosage: 1 1/2 TAB QD
     Route: 048
  5. SOTALOL [Concomitant]
     Indication: ATRIAL FIBRILLATION
     Route: 048
  6. PROTONIX [Concomitant]
     Indication: GASTROOESOPHAGEAL REFLUX DISEASE
     Route: 048

REACTIONS (2)
  - ABDOMINAL PAIN [None]
  - CONSTIPATION [None]
